FAERS Safety Report 6284392-7 (Version None)
Quarter: 2009Q3

REPORT INFORMATION
  Report Type: 
  Country: None (occurrence: None)
  Receive Date: 20090727
  Receipt Date: 20090717
  Transmission Date: 20100115
  Serious: Yes (Death)
  Sender: FDA-Public Use
  Company Number: DE-ROCHE-641585

PATIENT

DRUGS (3)
  1. CAPECITABINE [Suspect]
     Route: 065
  2. FORTECORTIN [Concomitant]
     Dosage: DOSE: 8 MG (1-0.5-0.5)
  3. LASIX [Concomitant]
     Dosage: DOSE: 40 EVERY SECOND DAY

REACTIONS (4)
  - BREAST CANCER METASTATIC [None]
  - CARDIAC FAILURE [None]
  - CEREBRAL DISORDER [None]
  - HEPATIC FAILURE [None]
